FAERS Safety Report 6887450-9 (Version None)
Quarter: 2010Q3

REPORT INFORMATION
  Report Type: 
  Country: None (occurrence: None)
  Receive Date: 20100730
  Receipt Date: 20100727
  Transmission Date: 20110219
  Serious: Yes (Death)
  Sender: FDA-Public Use
  Company Number: US-GILEAD-2010-0030205

PATIENT
  Age: 73 Year
  Sex: Female
  Weight: 49.94 kg

DRUGS (15)
  1. LETAIRIS [Suspect]
     Indication: PULMONARY ARTERIAL HYPERTENSION
     Route: 048
     Dates: start: 20090811
  2. REVATIO [Concomitant]
  3. LASIX [Concomitant]
  4. PREDNISONE [Concomitant]
  5. CARDIZEM [Concomitant]
  6. BONIVA [Concomitant]
  7. MOBIC [Concomitant]
  8. LYRICA [Concomitant]
  9. FERROUS SULFATE [Concomitant]
  10. MULTI-VITAMINS [Concomitant]
  11. TUMS [Concomitant]
  12. LORTAB [Concomitant]
  13. PLETAL [Concomitant]
  14. EVOXAC [Concomitant]
  15. ASPIRIN [Concomitant]

REACTIONS (2)
  - DEATH [None]
  - URINARY TRACT INFECTION [None]
